FAERS Safety Report 5134622-X (Version None)
Quarter: 2006Q4

REPORT INFORMATION
  Report Type: 
  Country: None (occurrence: None)
  Receive Date: 20061025
  Receipt Date: 20061023
  Transmission Date: 20070319
  Serious: Yes (Other)
  Sender: FDA-Public Use
  Company Number: CA-GLAXOSMITHKLINE-A0624654A

PATIENT
  Sex: Female

DRUGS (1)
  1. AVANDIA [Suspect]

REACTIONS (1)
  - PANCREATITIS CHRONIC [None]
